FAERS Safety Report 16373393 (Version 4)
Quarter: 2019Q3

REPORT INFORMATION
  Report Type: Spontaneous
  Country: US (occurrence: US)
  Receive Date: 20190530
  Receipt Date: 20190715
  Transmission Date: 20191004
  Serious: Yes (Hospitalization, Other)
  Sender: FDA-Public Use
  Company Number: US-SA-2019SA143718

PATIENT
  Age: 15 Year
  Sex: Female
  Weight: 48.08 kg

DRUGS (24)
  1. DIPHENHYDRAMINE. [Concomitant]
     Active Substance: DIPHENHYDRAMINE
     Indication: ANAPHYLACTIC REACTION
     Dosage: 25 MG, PRN
     Route: 048
     Dates: start: 20181108
  2. HEPARIN [Concomitant]
     Active Substance: HEPARIN SODIUM
     Indication: PREMEDICATION
     Dosage: 100 UN/MIN, UNK
     Route: 042
     Dates: start: 20181108
  3. NORMAL SALINE [Concomitant]
     Active Substance: SODIUM CHLORIDE
     Dosage: 0.9 %, UNK
     Route: 042
     Dates: start: 20181108
  4. L.M.X. 4 PLUS [Concomitant]
     Indication: PREMEDICATION
     Dosage: 4 %, UNK
     Route: 061
     Dates: start: 20181108
  5. HYDROCORTISONE. [Concomitant]
     Active Substance: HYDROCORTISONE
     Indication: ANAPHYLACTIC REACTION
     Dosage: 40 MG, PRN
     Route: 042
     Dates: start: 20181108
  6. LIDOCAINE/PRILOCAINE [Concomitant]
     Active Substance: LIDOCAINE\PRILOCAINE
     Indication: PREMEDICATION
     Dosage: 2.5 % PTI
     Route: 061
     Dates: start: 20181108
  7. EPINEPHRINE. [Concomitant]
     Active Substance: EPINEPHRINE
     Indication: ANAPHYLACTIC REACTION
     Dosage: 0.3 MG, PRN
     Route: 030
     Dates: start: 20181108
  8. FLOVENT [Concomitant]
     Active Substance: FLUTICASONE PROPIONATE
     Dosage: 2 PUFFS BY MOUTH TWICE DAILY, BID
     Route: 048
     Dates: start: 20171031
  9. PEPTAMEN AF [Concomitant]
     Dosage: 500 ML, BID
     Route: 050
     Dates: start: 20171031
  10. LUMIZYME [Suspect]
     Active Substance: ALGLUCOSIDASE ALFA
     Indication: GLYCOGEN STORAGE DISEASE TYPE II
     Dosage: 40.9 MG, QW
     Route: 041
     Dates: start: 20171102
  11. MIRALAX [Concomitant]
     Active Substance: POLYETHYLENE GLYCOL 3350
     Dosage: 1 DOSE BY MOUTH, PRN
     Route: 048
     Dates: start: 20171031
  12. VITAMIN D NOS [Concomitant]
     Active Substance: VITAMIN D NOS
     Dosage: 1 DOSE BY MOUTH DAILY
     Route: 048
     Dates: start: 20171031
  13. OXYGEN. [Concomitant]
     Active Substance: OXYGEN
     Dosage: 2 L/MIN; PRN
     Route: 045
     Dates: start: 20140627
  14. LUMIZYME [Suspect]
     Active Substance: ALGLUCOSIDASE ALFA
     Indication: GLYCOGEN STORAGE DISORDER
     Dosage: 40.9 MG/KG
     Route: 041
  15. STERILE WATER [Concomitant]
     Active Substance: WATER
     Dosage: 1 EACH IV
     Route: 042
     Dates: start: 20181108
  16. FLONASE [Concomitant]
     Active Substance: FLUTICASONE PROPIONATE
  17. TRIAMCINOLONE [Concomitant]
     Active Substance: TRIAMCINOLONE
     Dosage: 0.025 MG, TID
     Route: 061
     Dates: start: 20190628
  18. SODIUM CHLORIDE 0.9% [Concomitant]
     Active Substance: SODIUM CHLORIDE
     Dosage: 0.9 %, UNK
     Route: 042
     Dates: start: 20181108
  19. SODIUM CHLORIDE 0.9% [Concomitant]
     Active Substance: SODIUM CHLORIDE
     Dosage: 1 DOSE AS DIRECTED
     Route: 065
     Dates: start: 20171031
  20. TRIAMCINOLONE [Concomitant]
     Active Substance: TRIAMCINOLONE
     Dosage: 1 APPLICATION, PRN
     Route: 061
     Dates: start: 20171031
  21. METHYLPREDNISOLONE. [Concomitant]
     Active Substance: METHYLPREDNISOLONE
     Indication: PREMEDICATION
     Dosage: 80 MG, PRN
     Route: 042
     Dates: start: 20181108
  22. PROAIR HFA [Concomitant]
     Active Substance: ALBUTEROL SULFATE
     Dosage: 4 PUFF INHALATION, BID
     Route: 055
     Dates: start: 20171031
  23. PEPTAMEN AF [Concomitant]
     Dosage: 500 ML, BID
     Route: 050
     Dates: start: 20140627
  24. LORATADINE. [Concomitant]
     Active Substance: LORATADINE
     Dosage: 10 MG, QD
     Route: 048
     Dates: start: 20190628

REACTIONS (6)
  - Feeling cold [Unknown]
  - Salivary hypersecretion [Unknown]
  - Dysphagia [Unknown]
  - Inappropriate schedule of product administration [Unknown]
  - Pneumonia aspiration [Unknown]
  - Hospitalisation [Unknown]

NARRATIVE: CASE EVENT DATE: 20171102
